FAERS Safety Report 5340636-7 (Version None)
Quarter: 2007Q2

REPORT INFORMATION
  Report Type: 
  Country: None (occurrence: None)
  Receive Date: 20070405
  Receipt Date: 20061214
  Transmission Date: 20071010
  Serious: No
  Sender: FDA-Public Use
  Company Number: US200612002553

PATIENT
  Age: 60 Year
  Sex: Female

DRUGS (7)
  1. CYMBALTA [Suspect]
     Dosage: 30 MG, EACH MORNING
     Dates: start: 20061213
  2. ATENOLOL [Concomitant]
  3. PRAVACHOL [Concomitant]
  4. GABAPENTIN [Concomitant]
  5. CLONAZEPAM [Concomitant]
  6. BENADRYL (AMMONIUM CHLORIDE, DIPHENHYDRAMINE HYDROCHLORIDE, MENTHOL, S [Concomitant]
  7. BACTRIM DS [Concomitant]

REACTIONS (6)
  - FEELING ABNORMAL [None]
  - FEELING COLD [None]
  - GAIT DISTURBANCE [None]
  - MALAISE [None]
  - MOOD ALTERED [None]
  - NAUSEA [None]
